FAERS Safety Report 25999869 (Version 1)
Quarter: 2025Q4

REPORT INFORMATION
  Report Type: Spontaneous
  Country: US (occurrence: US)
  Receive Date: 20251105
  Receipt Date: 20251105
  Transmission Date: 20260117
  Serious: Yes (Other)
  Sender: MYLAN
  Company Number: US-MYLANLABS-2025M1093579

PATIENT
  Age: 30 Year
  Sex: Male

DRUGS (12)
  1. SERTRALINE [Suspect]
     Active Substance: SERTRALINE HYDROCHLORIDE
     Indication: Schizoaffective disorder bipolar type
     Dosage: UNK, RECEIVED BETWEEN NOVEMBER 2022 TO SEPTEMBER 2023 FOR 4 TIMES, DISCONTINUED AND RESTARTED
  2. SERTRALINE [Suspect]
     Active Substance: SERTRALINE HYDROCHLORIDE
     Dosage: UNK, RECEIVED BETWEEN NOVEMBER 2022 TO SEPTEMBER 2023 FOR 4 TIMES, DISCONTINUED AND RESTARTED
     Route: 065
  3. SERTRALINE [Suspect]
     Active Substance: SERTRALINE HYDROCHLORIDE
     Dosage: UNK, RECEIVED BETWEEN NOVEMBER 2022 TO SEPTEMBER 2023 FOR 4 TIMES, DISCONTINUED AND RESTARTED
     Route: 065
  4. SERTRALINE [Suspect]
     Active Substance: SERTRALINE HYDROCHLORIDE
     Dosage: UNK, RECEIVED BETWEEN NOVEMBER 2022 TO SEPTEMBER 2023 FOR 4 TIMES, DISCONTINUED AND RESTARTED
  5. PALIPERIDONE [Suspect]
     Active Substance: PALIPERIDONE
     Indication: Catatonia
     Dosage: UNK
  6. PALIPERIDONE [Suspect]
     Active Substance: PALIPERIDONE
     Dosage: UNK
     Route: 065
  7. PALIPERIDONE [Suspect]
     Active Substance: PALIPERIDONE
     Dosage: UNK
     Route: 065
  8. PALIPERIDONE [Suspect]
     Active Substance: PALIPERIDONE
     Dosage: UNK
  9. MEMANTINE [Concomitant]
     Active Substance: MEMANTINE
     Indication: Catatonia
     Dosage: UNK
  10. MEMANTINE [Concomitant]
     Active Substance: MEMANTINE
     Dosage: UNK
     Route: 065
  11. MEMANTINE [Concomitant]
     Active Substance: MEMANTINE
     Dosage: UNK
     Route: 065
  12. MEMANTINE [Concomitant]
     Active Substance: MEMANTINE
     Dosage: UNK

REACTIONS (1)
  - Catatonia [Unknown]
